FAERS Safety Report 20548775 (Version 1)
Quarter: 2022Q1

REPORT INFORMATION
  Report Type: Spontaneous
  Country: US (occurrence: US)
  Receive Date: 20220303
  Receipt Date: 20220303
  Transmission Date: 20220423
  Serious: No
  Sender: FDA-Public Use
  Company Number: US-ABBVIE-21K-163-4035123-00

PATIENT
  Sex: Male

DRUGS (1)
  1. ANDROGEL [Suspect]
     Active Substance: TESTOSTERONE
     Indication: Product used for unknown indication
     Dosage: FOR OVER 10 YEARS?STRENGTH: 5 MG/G
     Route: 061

REACTIONS (5)
  - Fatigue [Unknown]
  - Asthenia [Unknown]
  - Blood testosterone decreased [Unknown]
  - Product physical issue [Recovered/Resolved]
  - Blood test abnormal [Unknown]
